FAERS Safety Report 15271725 (Version 1)
Quarter: 2018Q3

REPORT INFORMATION
  Report Type: Spontaneous
  Country: US (occurrence: US)
  Receive Date: 20180727
  Receipt Date: 20180727
  Transmission Date: 20181010
  Serious: Yes (Hospitalization, Disabling)
  Sender: FDA-Public Use
  Company Number: None

PATIENT
  Age: 22 Year
  Sex: Female
  Weight: 61.23 kg

DRUGS (1)
  1. PARAGARD T 380A [Suspect]
     Active Substance: COPPER

REACTIONS (10)
  - Complication associated with device [None]
  - Migraine [None]
  - Pain [None]
  - Arthritis [None]
  - Bone disorder [None]
  - Ovarian cyst ruptured [None]
  - Menorrhagia [None]
  - Muscle spasms [None]
  - Fungal infection [None]
  - Inflammation [None]

NARRATIVE: CASE EVENT DATE: 20180224
